FAERS Safety Report 26012742 (Version 1)
Quarter: 2025Q4

REPORT INFORMATION
  Report Type: Report from Study
  Country: US (occurrence: US)
  Receive Date: 20251107
  Receipt Date: 20251107
  Transmission Date: 20260118
  Serious: Yes (Other)
  Sender: JAZZ
  Company Number: US-JAZZ PHARMACEUTICALS-2025-US-018734

PATIENT
  Sex: Male
  Weight: 25.397 kg

DRUGS (1)
  1. EPIDIOLEX [Suspect]
     Active Substance: CANNABIDIOL
     Indication: Idiopathic generalised epilepsy
     Dosage: 3.93 MICROGRAM/KILOGRAM/DAY, BID
     Dates: start: 20250623, end: 20251030

REACTIONS (3)
  - Seizure [Unknown]
  - Seizure [Unknown]
  - Off label use [Unknown]
